FAERS Safety Report 22620222 (Version 1)
Quarter: 2023Q2

REPORT INFORMATION
  Report Type: Spontaneous
  Country: IT (occurrence: IT)
  Receive Date: 20230620
  Receipt Date: 20230620
  Transmission Date: 20230722
  Serious: Yes (Other)
  Sender: FDA-Public Use
  Company Number: IT-ELI_LILLY_AND_COMPANY-IT202305013920

PATIENT
  Age: 37 Year
  Sex: Female

DRUGS (2)
  1. PEMETREXED [Suspect]
     Active Substance: PEMETREXED
     Indication: Lung adenocarcinoma
     Dosage: UNK, UNKNOWN
     Route: 065
     Dates: start: 201906, end: 202102
  2. CISPLATIN [Concomitant]
     Active Substance: CISPLATIN
     Indication: Lung adenocarcinoma
     Dosage: UNK,UNKNOWN
     Route: 065
     Dates: start: 201906, end: 202102

REACTIONS (4)
  - Malignant neoplasm progression [Unknown]
  - Pleural effusion [Unknown]
  - Pleural mass [Unknown]
  - Nodule [Unknown]
